FAERS Safety Report 10152673 (Version 1)
Quarter: 2014Q2

REPORT INFORMATION
  Report Type: Spontaneous
  Country: US (occurrence: None)
  Receive Date: 20140502
  Receipt Date: 20140502
  Transmission Date: 20141212
  Serious: No
  Sender: FDA-Public Use
  Company Number: None

PATIENT
  Age: 29 Year
  Sex: Female
  Weight: 67.59 kg

DRUGS (2)
  1. QUETIAPINE [Suspect]
     Indication: BIPOLAR I DISORDER
     Route: 048
     Dates: start: 2007
  2. RESTORIL [Concomitant]

REACTIONS (1)
  - Tachycardia [None]
